FAERS Safety Report 10014828 (Version 1)
Quarter: 2014Q1

REPORT INFORMATION
  Report Type: Spontaneous
  Country: US (occurrence: US)
  Receive Date: 20140317
  Receipt Date: 20140317
  Transmission Date: 20141002
  Serious: Yes (Hospitalization)
  Sender: FDA-Public Use
  Company Number: US-PFIZER INC-2014071747

PATIENT
  Age: 54 Year
  Sex: Male

DRUGS (1)
  1. XALKORI [Suspect]
     Indication: LUNG NEOPLASM MALIGNANT
     Dosage: 250 MG, 2X/DAY (1 CAPSULE TWICE DAILY)
     Dates: start: 20140221

REACTIONS (5)
  - Confusional state [Unknown]
  - Agitation [Unknown]
  - Dyspnoea [Unknown]
  - Fluid retention [Unknown]
  - Pneumonitis [Unknown]
